FAERS Safety Report 12393989 (Version 1)
Quarter: 2016Q2

REPORT INFORMATION
  Report Type: Spontaneous
  Country: GB (occurrence: GB)
  Receive Date: 20160523
  Receipt Date: 20160523
  Transmission Date: 20160815
  Serious: Yes (Death)
  Sender: FDA-Public Use
  Company Number: GB-MYLANLABS-2016M1020994

PATIENT

DRUGS (2)
  1. EPIPEN [Suspect]
     Active Substance: EPINEPHRINE
     Indication: ANAPHYLACTIC REACTION
     Dosage: UNK
  2. EPIPEN [Suspect]
     Active Substance: EPINEPHRINE
     Indication: ARTHROPOD STING

REACTIONS (3)
  - Anaphylactic shock [Fatal]
  - Arthropod sting [Fatal]
  - Drug ineffective [Fatal]

NARRATIVE: CASE EVENT DATE: 20150901
